FAERS Safety Report 12592125 (Version 1)
Quarter: 2016Q3

REPORT INFORMATION
  Report Type: Spontaneous
  Country: US (occurrence: US)
  Receive Date: 20160726
  Receipt Date: 20160726
  Transmission Date: 20161109
  Serious: No
  Sender: FDA-Public Use
  Company Number: US-BAYER-2016-136106

PATIENT
  Age: 63 Year
  Sex: Female
  Weight: 79.37 kg

DRUGS (4)
  1. PROZAC [Concomitant]
     Active Substance: FLUOXETINE HYDROCHLORIDE
     Dosage: UNK
  2. MIRALAX [Suspect]
     Active Substance: POLYETHYLENE GLYCOL 3350
     Indication: CONSTIPATION
     Dosage: 1 DF, TID
     Route: 048
     Dates: start: 2016
  3. MILK OF MAGNESIA ORIGINAL [Suspect]
     Active Substance: MAGNESIUM HYDROXIDE
     Indication: CONSTIPATION
     Dosage: 2.5 TABLESPOON, QD
     Route: 048
  4. KLONOPIN [Concomitant]
     Active Substance: CLONAZEPAM
     Dosage: UNK

REACTIONS (6)
  - Abdominal pain upper [Not Recovered/Not Resolved]
  - Drug ineffective [None]
  - Retching [None]
  - Middle insomnia [Recovered/Resolved]
  - Abdominal pain upper [Recovered/Resolved]
  - Product use issue [None]

NARRATIVE: CASE EVENT DATE: 2016
